FAERS Safety Report 23055700 (Version 1)
Quarter: 2023Q4

REPORT INFORMATION
  Report Type: Spontaneous
  Country: US (occurrence: None)
  Receive Date: 20231011
  Receipt Date: 20231011
  Transmission Date: 20240110
  Serious: No
  Sender: FDA-Public Use
  Company Number: None

PATIENT
  Age: 49 Year
  Sex: Female
  Weight: 135 kg

DRUGS (5)
  1. FLUOROURACIL [Suspect]
     Active Substance: FLUOROURACIL
     Dates: end: 20230818
  2. XELODA [Suspect]
     Active Substance: CAPECITABINE
     Dates: end: 20230720
  3. CAMPTOSAR [Suspect]
     Active Substance: IRINOTECAN HYDROCHLORIDE
     Dates: end: 20230816
  4. LEUCOVORIN CALCIUM [Suspect]
     Active Substance: LEUCOVORIN CALCIUM
     Dates: end: 20230816
  5. ELOXATIN [Suspect]
     Active Substance: OXALIPLATIN
     Dates: end: 20230816

REACTIONS (3)
  - Diarrhoea [None]
  - Blood potassium decreased [None]
  - Therapy interrupted [None]

NARRATIVE: CASE EVENT DATE: 20230820
